FAERS Safety Report 10784350 (Version 1)
Quarter: 2015Q1

REPORT INFORMATION
  Report Type: Spontaneous
  Country: US (occurrence: None)
  Receive Date: 20150209
  Receipt Date: 20150209
  Transmission Date: 20150721
  Serious: Yes (Life-Threatening)
  Sender: FDA-Public Use
  Company Number: None

PATIENT
  Age: 90 Year
  Sex: Female
  Weight: 49.9 kg

DRUGS (1)
  1. TOPIRAMATE (GENERIC) [Suspect]
     Active Substance: TOPIRAMATE
     Indication: MIGRAINE

REACTIONS (4)
  - Erythema [None]
  - Asphyxia [None]
  - Intentional self-injury [None]
  - Abnormal behaviour [None]

NARRATIVE: CASE EVENT DATE: 20150205
